FAERS Safety Report 8523051-4 (Version None)
Quarter: 2012Q3

REPORT INFORMATION
  Report Type: 
  Country: None (occurrence: None)
  Receive Date: 20120720
  Receipt Date: 20110112
  Transmission Date: 20120928
  Serious: Yes (Hospitalization, Other)
  Sender: FDA-Public Use
  Company Number: US-BAYER-201013349NA

PATIENT
  Age: 31 Year
  Sex: Female
  Weight: 45.455 kg

DRUGS (15)
  1. PROTONIX [Concomitant]
     Route: 048
     Dates: start: 20060101, end: 20060201
  2. YASMIN [Suspect]
     Route: 048
     Dates: start: 20010101, end: 20060101
  3. YAZ [Suspect]
     Route: 048
     Dates: start: 20010101, end: 20060101
  4. IRON [Concomitant]
     Route: 065
     Dates: start: 20060201
  5. ADVIL [Concomitant]
     Indication: MUSCLE SPASMS
     Dosage: TAKES EACH WEEK
     Route: 048
  6. PREDNISONE [Concomitant]
     Route: 048
     Dates: start: 20060201
  7. TOPROL-XL [Concomitant]
     Route: 048
     Dates: start: 20060101, end: 20060201
  8. XANAX [Concomitant]
     Route: 065
     Dates: start: 20060201
  9. EPOGEN [Concomitant]
     Dates: start: 20060101, end: 20060201
  10. TOPROL-XL [Concomitant]
     Route: 048
     Dates: start: 20060201
  11. PREVACID [Concomitant]
     Route: 048
     Dates: start: 20060201
  12. FOLIC ACID [Concomitant]
     Route: 065
     Dates: start: 20060201
  13. NORVASC [Concomitant]
     Route: 048
     Dates: start: 20060101, end: 20060201
  14. FERROUS SULFATE TAB [Concomitant]
     Route: 048
     Dates: start: 20060101, end: 20060201
  15. PREDNISONE [Concomitant]
     Route: 048
     Dates: start: 20060101, end: 20060501

REACTIONS (11)
  - NAUSEA [None]
  - RENAL FAILURE ACUTE [None]
  - RENAL FAILURE [None]
  - DEHYDRATION [None]
  - ANAEMIA [None]
  - HAEMOLYTIC URAEMIC SYNDROME [None]
  - VOMITING [None]
  - DIARRHOEA [None]
  - CHILLS [None]
  - ABDOMINAL PAIN [None]
  - BLOOD DISORDER [None]
